FAERS Safety Report 18724766 (Version 1)
Quarter: 2021Q1

REPORT INFORMATION
  Report Type: Spontaneous
  Country: US (occurrence: US)
  Receive Date: 20210111
  Receipt Date: 20210111
  Transmission Date: 20210419
  Serious: Yes (Hospitalization)
  Sender: FDA-Public Use
  Company Number: None

PATIENT
  Age: 71 Year
  Sex: Male
  Weight: 89 kg

DRUGS (1)
  1. EMPAGLIFLOZIN (EMPAGLIFLOZIN 10MG TAB) [Suspect]
     Active Substance: EMPAGLIFLOZIN
     Indication: DIABETES MELLITUS
     Dosage: ?          OTHER DOSE:1 TAB ;?
     Route: 048
     Dates: start: 20200407, end: 20200806

REACTIONS (17)
  - Urosepsis [None]
  - Urinary tract infection [None]
  - Escherichia infection [None]
  - Glycosylated haemoglobin increased [None]
  - Adverse drug reaction [None]
  - Hypotension [None]
  - Micturition urgency [None]
  - Nausea [None]
  - Blood glucose increased [None]
  - Culture urine positive [None]
  - Pyrexia [None]
  - Pollakiuria [None]
  - Vomiting [None]
  - Prostatic specific antigen increased [None]
  - Prostatomegaly [None]
  - Infection [None]
  - Treatment noncompliance [None]

NARRATIVE: CASE EVENT DATE: 20200808
